FAERS Safety Report 6978297-3 (Version None)
Quarter: 2010Q3

REPORT INFORMATION
  Report Type: 
  Country: None (occurrence: None)
  Receive Date: 20100913
  Receipt Date: 20100831
  Transmission Date: 20110219
  Serious: No
  Sender: FDA-Public Use
  Company Number: US-B.I. PHARMACEUTICALS,INC./RIDGEFIELD-2010-BP-09885BP

PATIENT
  Age: 75 Year
  Sex: Male

DRUGS (16)
  1. CATAPRES-TTS-1 [Suspect]
     Indication: HYPERTENSION
     Dosage: 1 MG
     Route: 061
     Dates: start: 20100524, end: 20100614
  2. BYSTOLIC [Concomitant]
     Dosage: 10 MG
  3. CARVEDILOL [Concomitant]
  4. PLAVIX [Concomitant]
     Dosage: 75 MG
  5. LIPITOR [Concomitant]
     Dosage: 80 MG
  6. TEKTURNA [Concomitant]
  7. LOSARTAN POTASSIUM WITH HCTZ [Concomitant]
  8. COUMADIN [Concomitant]
     Dosage: 5 MG
  9. LANTUS [Concomitant]
  10. PRAMIPEXOLE DIHYDROCHLORIDE [Concomitant]
     Indication: MUSCLE SPASMS
  11. CALCIUM PLUS VITAMIN D [Concomitant]
  12. VITAMIN D [Concomitant]
     Dosage: 1000 U
  13. NIACIN [Concomitant]
  14. NOVALOG [Concomitant]
  15. TESTIM [Concomitant]
  16. HYDROCODONE [Concomitant]
     Indication: PAIN

REACTIONS (1)
  - BLOOD PRESSURE DECREASED [None]
